FAERS Safety Report 8609796-6 (Version None)
Quarter: 2012Q3

REPORT INFORMATION
  Report Type: 
  Country: None (occurrence: None)
  Receive Date: 20120821
  Receipt Date: 20120812
  Transmission Date: 20120928
  Serious: Yes (Other)
  Sender: FDA-Public Use
  Company Number: CHPA2012US017464

PATIENT
  Age: 75 Year
  Sex: Female

DRUGS (2)
  1. ALUMINUM HYDROXIDE AND MAGNESIUM TRISILICATE [Suspect]
     Indication: GASTROOESOPHAGEAL REFLUX DISEASE
     Dosage: UNK, UNK
     Route: 048
     Dates: start: 19920101
  2. MAALOX MAX ANTACID+ANTIGAS [Suspect]
     Indication: GASTROOESOPHAGEAL REFLUX DISEASE
     Dosage: 4 DF, QD
     Route: 048
     Dates: start: 20120101

REACTIONS (5)
  - ERUCTATION [None]
  - DISEASE RECURRENCE [None]
  - PNEUMONIA [None]
  - THERAPEUTIC RESPONSE UNEXPECTED [None]
  - OFF LABEL USE [None]
